FAERS Safety Report 14106786 (Version 3)
Quarter: 2018Q1

REPORT INFORMATION
  Report Type: Spontaneous
  Country: US (occurrence: US)
  Receive Date: 20171019
  Receipt Date: 20180126
  Transmission Date: 20180508
  Serious: No
  Sender: FDA-Public Use
  Company Number: US-PFIZER INC-2017448068

PATIENT
  Age: 67 Year
  Sex: Female
  Weight: 62.6 kg

DRUGS (4)
  1. GABAPENTIN. [Concomitant]
     Active Substance: GABAPENTIN
     Indication: LIMB INJURY
     Dosage: UNK
  2. CHANTIX [Suspect]
     Active Substance: VARENICLINE TARTRATE
     Indication: SMOKING CESSATION THERAPY
     Dosage: 1 MG, 2X/DAY
     Route: 048
     Dates: start: 20171008
  3. TRAMADOL. [Concomitant]
     Active Substance: TRAMADOL
     Indication: LIMB INJURY
     Dosage: UNK
  4. NAPROXEN. [Concomitant]
     Active Substance: NAPROXEN
     Indication: LIMB INJURY
     Dosage: UNK

REACTIONS (4)
  - Drug dose omission [Recovered/Resolved]
  - Drug hypersensitivity [Unknown]
  - Mastication disorder [Recovered/Resolved]
  - Oral pain [Recovered/Resolved]

NARRATIVE: CASE EVENT DATE: 201710
